FAERS Safety Report 13627867 (Version 1)
Quarter: 2017Q2

REPORT INFORMATION
  Report Type: Spontaneous
  Country: US (occurrence: US)
  Receive Date: 20170531
  Receipt Date: 20170531
  Transmission Date: 20170830
  Serious: Yes (Hospitalization)
  Sender: FDA-Public Use
  Company Number: US-ASTELLAS-1621127

PATIENT
  Age: 57 Year
  Sex: Male

DRUGS (1)
  1. TARCEVA [Suspect]
     Active Substance: ERLOTINIB HYDROCHLORIDE
     Indication: MALIGNANT RESPIRATORY TRACT NEOPLASM
     Dosage: THERAPY WITH ERLOTINIB HYDROCHLORIDE ADMINISTERED ON 15 DAYS AGO TO 5 DAYS AGO.
     Route: 048

REACTIONS (1)
  - Dyspnoea [Unknown]
